FAERS Safety Report 4732698-2 (Version None)
Quarter: 2005Q3

REPORT INFORMATION
  Report Type: 
  Country: None (occurrence: None)
  Receive Date: 20050801
  Receipt Date: 20050718
  Transmission Date: 20060218
  Serious: Yes (Hospitalization)
  Sender: FDA-Public Use
  Company Number: 200510482BFR

PATIENT
  Age: 59 Year
  Sex: Male

DRUGS (6)
  1. MOXIFLOXACIN HYDROCHLORIDE [Suspect]
     Indication: BRONCHOPNEUMONIA
     Dosage: ORAL
     Route: 048
     Dates: start: 20050502, end: 20050528
  2. COVERSYL/FRA/ [Concomitant]
  3. DEROXAT [Concomitant]
  4. NEXIUM [Concomitant]
  5. SYMBICORT TURBUHALER [Concomitant]
  6. OXEOL [Concomitant]

REACTIONS (7)
  - EOSINOPHILIA [None]
  - HAEMOLYSIS [None]
  - LEUKOCYTOCLASTIC VASCULITIS [None]
  - LEUKOCYTOSIS [None]
  - TENDON DISORDER [None]
  - TOXIC SKIN ERUPTION [None]
  - VASCULAR PURPURA [None]
